FAERS Safety Report 5795700-5 (Version None)
Quarter: 2008Q2

REPORT INFORMATION
  Report Type: 
  Country: None (occurrence: None)
  Receive Date: 20080630
  Receipt Date: 20080611
  Transmission Date: 20081010
  Serious: No
  Sender: FDA-Public Use
  Company Number: US-BOEHRINGER INGELHEIM GMBH, GERMANY-2008-BP-09128BP

PATIENT
  Age: 77 Year
  Sex: Female

DRUGS (6)
  1. SPIRIVA [Suspect]
     Indication: EMPHYSEMA
     Route: 055
     Dates: start: 20080509, end: 20080608
  2. SPIRIVA [Suspect]
     Route: 048
     Dates: start: 20080526, end: 20080526
  3. METOPROLOL [Concomitant]
  4. LOTENSIN [Concomitant]
  5. ISOSORBIDE DINITRATE [Concomitant]
  6. ASPIRIN [Concomitant]

REACTIONS (3)
  - BLISTER [None]
  - INCORRECT ROUTE OF DRUG ADMINISTRATION [None]
  - RASH PRURITIC [None]
